FAERS Safety Report 25178494 (Version 1)
Quarter: 2025Q2

REPORT INFORMATION
  Report Type: Spontaneous
  Country: US (occurrence: US)
  Receive Date: 20250409
  Receipt Date: 20250409
  Transmission Date: 20250716
  Serious: Yes (Other)
  Sender: SANOFI AVENTIS
  Company Number: US-SA-2025SA097765

PATIENT
  Age: 42 Year
  Sex: Male

DRUGS (17)
  1. DUPIXENT [Suspect]
     Active Substance: DUPILUMAB
     Indication: Asthma
     Route: 058
     Dates: start: 20240711
  2. Acetylsalicylic acid;Atorvastatin [Concomitant]
  3. METFORMIN [Concomitant]
     Active Substance: METFORMIN HYDROCHLORIDE
  4. SEMAGLUTIDE [Concomitant]
     Active Substance: SEMAGLUTIDE
  5. REPATHA [Concomitant]
     Active Substance: EVOLOCUMAB
  6. CELEBREX [Concomitant]
     Active Substance: CELECOXIB
  7. MONTELUKAST [Concomitant]
     Active Substance: MONTELUKAST
  8. ROSUVASTATIN [Concomitant]
     Active Substance: ROSUVASTATIN
  9. FLUOXETINE [Concomitant]
     Active Substance: FLUOXETINE HYDROCHLORIDE
  10. PRASUGREL [Concomitant]
     Active Substance: PRASUGREL
  11. POTASSIUM [Concomitant]
     Active Substance: POTASSIUM
  12. BUPROPION [Concomitant]
     Active Substance: BUPROPION
  13. LOSARTAN [Concomitant]
     Active Substance: LOSARTAN
  14. ESCITALOPRAM [Concomitant]
     Active Substance: ESCITALOPRAM OXALATE
  15. HYDROCHLOROTHIAZIDE [Concomitant]
     Active Substance: HYDROCHLOROTHIAZIDE
  16. AMLODIPINE [Concomitant]
     Active Substance: AMLODIPINE BESYLATE
  17. ESOMEPRAZOLE [Concomitant]
     Active Substance: ESOMEPRAZOLE

REACTIONS (1)
  - Myocardial infarction [Unknown]

NARRATIVE: CASE EVENT DATE: 20250403
